FAERS Safety Report 23570613 (Version 3)
Quarter: 2024Q1

REPORT INFORMATION
  Report Type: Spontaneous
  Country: JP (occurrence: JP)
  Receive Date: 20240227
  Receipt Date: 20240304
  Transmission Date: 20240410
  Serious: Yes (Other)
  Sender: FDA-Public Use
  Company Number: JP-MLMSERVICE-20240216-4831976-1

PATIENT
  Age: 78 Year
  Sex: Female
  Weight: 59 kg

DRUGS (3)
  1. OXALIPLATIN [Suspect]
     Active Substance: OXALIPLATIN
     Indication: Gastric cancer stage IV
     Dosage: UNK UNK, CYCLIC
     Dates: start: 202101
  2. TS-1 [Suspect]
     Active Substance: GIMERACIL\OTERACIL POTASSIUM\TEGAFUR
     Indication: Gastric cancer stage IV
     Dosage: UNK UNK, CYCLIC
     Dates: start: 202101
  3. NIVOLUMAB [Suspect]
     Active Substance: NIVOLUMAB
     Indication: Gastric cancer stage IV
     Dosage: UNK UNK, CYCLIC
     Dates: start: 202101

REACTIONS (4)
  - Decreased appetite [Unknown]
  - Fatigue [Unknown]
  - Off label use [Unknown]
  - Drug effective for unapproved indication [Unknown]

NARRATIVE: CASE EVENT DATE: 20210101
